FAERS Safety Report 24194404 (Version 1)
Quarter: 2024Q3

REPORT INFORMATION
  Report Type: Spontaneous
  Country: US (occurrence: None)
  Receive Date: 20240808
  Receipt Date: 20240808
  Transmission Date: 20241017
  Serious: No
  Sender: Public
  Company Number: None

PATIENT
  Age: 41 Year
  Sex: Female
  Weight: 87.75 kg

DRUGS (18)
  1. CAPLYTA [Suspect]
     Active Substance: LUMATEPERONE
     Indication: Borderline personality disorder
     Dosage: 30 CAPSULES AT BEDTME ORAL
     Route: 048
     Dates: start: 20240807
  2. CAPLYTA [Suspect]
     Active Substance: LUMATEPERONE
     Indication: Insomnia
  3. CAPLYTA [Suspect]
     Active Substance: LUMATEPERONE
     Indication: Insomnia
  4. CAPLYTA [Suspect]
     Active Substance: LUMATEPERONE
     Indication: Insomnia
  5. CAPLYTA [Suspect]
     Active Substance: LUMATEPERONE
     Indication: Insomnia
  6. CANNABIS SATIVA SUBSP. INDICA TOP [Concomitant]
     Active Substance: CANNABIS SATIVA SUBSP. INDICA TOP
  7. LEVOTHYROXINE [Concomitant]
     Active Substance: LEVOTHYROXINE\LEVOTHYROXINE SODIUM
  8. EFFEXOR [Concomitant]
     Active Substance: VENLAFAXINE HYDROCHLORIDE
  9. MOUNJARO [Concomitant]
     Active Substance: TIRZEPATIDE
  10. AMBIEN [Concomitant]
     Active Substance: ZOLPIDEM TARTRATE
  11. MELOXICAM [Concomitant]
     Active Substance: MELOXICAM
  12. VITAMINS [Concomitant]
     Active Substance: VITAMINS
  13. VITAMIN C [Concomitant]
     Active Substance: ASCORBIC ACID
  14. ZINC [Concomitant]
     Active Substance: ZINC
  15. POTASSIUM [Concomitant]
     Active Substance: POTASSIUM
  16. ADVIL [Concomitant]
     Active Substance: IBUPROFEN\IBUPROFEN SODIUM
  17. TYLENOL [Concomitant]
     Active Substance: ACETAMINOPHEN
  18. ALEVE [Concomitant]
     Active Substance: NAPROXEN SODIUM

REACTIONS (4)
  - Hypokinesia [None]
  - Musculoskeletal stiffness [None]
  - Myalgia [None]
  - Insomnia [None]

NARRATIVE: CASE EVENT DATE: 20240807
